FAERS Safety Report 10896902 (Version 1)
Quarter: 2015Q1

REPORT INFORMATION
  Report Type: Spontaneous
  Country: US (occurrence: US)
  Receive Date: 20150309
  Receipt Date: 20150309
  Transmission Date: 20150721
  Serious: Yes (Death)
  Sender: FDA-Public Use
  Company Number: US-BANPHARM-20153709

PATIENT
  Age: 58 Year
  Sex: Male

DRUGS (6)
  1. COCAINE [Suspect]
     Active Substance: COCAINE
  2. PROPRANOLOL [Suspect]
     Active Substance: PROPRANOLOL\PROPRANOLOL HYDROCHLORIDE
  3. HEROIN [Suspect]
     Active Substance: DIACETYLMORPHINE
  4. MIRTAZAPINE. [Suspect]
     Active Substance: MIRTAZAPINE
  5. CODEINE [Suspect]
     Active Substance: CODEINE
  6. DIPHENHYDRAMINE UNKNOWN PRODUCT [Suspect]
     Active Substance: DIPHENHYDRAMINE

REACTIONS (1)
  - Drug abuse [Fatal]
